FAERS Safety Report 8502785-1 (Version None)
Quarter: 2012Q3

REPORT INFORMATION
  Report Type: 
  Country: None (occurrence: None)
  Receive Date: 20120711
  Receipt Date: 20120711
  Transmission Date: 20120928
  Serious: Yes (Other)
  Sender: FDA-Public Use
  Company Number: US-JNJFOC-20120703992

PATIENT
  Sex: Female

DRUGS (12)
  1. CYCLOPHOSPHAMIDE [Suspect]
     Indication: NON-HODGKIN'S LYMPHOMA
     Route: 065
  2. VINCRISTINE SULFATE [Suspect]
     Indication: NON-HODGKIN'S LYMPHOMA
     Route: 065
  3. RADIATION THERAPY NOS [Suspect]
     Indication: NON-HODGKIN'S LYMPHOMA
     Route: 065
  4. RADIATION THERAPY NOS [Suspect]
     Indication: HODGKIN'S DISEASE
     Route: 065
  5. DOXORUBICIN HCL [Suspect]
     Indication: HODGKIN'S DISEASE
     Route: 042
  6. PREDNISONE [Suspect]
     Indication: NON-HODGKIN'S LYMPHOMA
     Route: 065
  7. RITUXAN [Suspect]
     Indication: NON-HODGKIN'S LYMPHOMA
     Route: 065
  8. BLEOMYCIN SULFATE [Suspect]
     Indication: HODGKIN'S DISEASE
  9. VINBLASTINE SULFATE [Suspect]
     Indication: HODGKIN'S DISEASE
     Route: 065
  10. DOXORUBICIN HCL [Suspect]
     Indication: NON-HODGKIN'S LYMPHOMA
     Route: 042
  11. DEXAMETHASONE SODIUM POSPHATE [Suspect]
     Indication: NON-HODGKIN'S LYMPHOMA
     Route: 065
  12. DACARBAZINE [Suspect]
     Indication: HODGKIN'S DISEASE
     Route: 065

REACTIONS (5)
  - MATERNAL EXPOSURE DURING PREGNANCY [None]
  - LABOUR INDUCTION [None]
  - PRE-ECLAMPSIA [None]
  - GESTATIONAL DIABETES [None]
  - PREMATURE RUPTURE OF MEMBRANES [None]
